FAERS Safety Report 8418833-3 (Version None)
Quarter: 2012Q2

REPORT INFORMATION
  Report Type: 
  Country: None (occurrence: None)
  Receive Date: 20120530
  Receipt Date: 20120521
  Transmission Date: 20120825
  Serious: Yes (Hospitalization)
  Sender: FDA-Public Use
  Company Number: 2012SP023052

PATIENT
  Age: 59 Year
  Sex: Male

DRUGS (17)
  1. VICTRELIS [Suspect]
     Indication: HEPATITIS C
     Dosage: 800 MG;TID;PO
     Route: 048
     Dates: start: 20120320, end: 20120329
  2. TRANDOLAPRIL [Concomitant]
  3. ESOMEPRAZOLE [Concomitant]
  4. ACETAMINOPHEN AND TRAMADOL HCL [Concomitant]
  5. PEGASYS [Concomitant]
  6. DOXAZOSIN MESYLATE [Concomitant]
  7. ASPIRIN [Concomitant]
  8. TETRAZEPAM [Concomitant]
  9. VITAMIN D [Concomitant]
  10. TRAMADOL HCL [Concomitant]
  11. PREDNISOLONE [Concomitant]
  12. COPEGUS [Concomitant]
  13. CLOPIDOGREL [Concomitant]
  14. ATENOLOL [Concomitant]
  15. OXAZEPAM [Concomitant]
  16. NASACORT [Concomitant]
  17. PRAVASTATIN [Suspect]
     Indication: PRODUCT USED FOR UNKNOWN INDICATION
     Dosage: PO
     Route: 048

REACTIONS (5)
  - ASTHENIA [None]
  - RHABDOMYOLYSIS [None]
  - PAIN IN JAW [None]
  - ABDOMINAL PAIN UPPER [None]
  - DYSPNOEA [None]
